FAERS Safety Report 6369893-5 (Version None)
Quarter: 2009Q3

REPORT INFORMATION
  Report Type: 
  Country: None (occurrence: None)
  Receive Date: 20090923
  Receipt Date: 20071115
  Transmission Date: 20100115
  Serious: Yes (Hospitalization, Other)
  Sender: FDA-Public Use
  Company Number: US-ASTRAZENECA-2006UW11551

PATIENT
  Sex: Female
  Weight: 83 kg

DRUGS (25)
  1. SEROQUEL [Suspect]
     Indication: ANXIETY
     Route: 048
     Dates: start: 20040504
  2. SEROQUEL [Suspect]
     Indication: SLEEP DISORDER
     Route: 048
     Dates: start: 20040504
  3. SEROQUEL [Suspect]
     Indication: POST-TRAUMATIC STRESS DISORDER
     Route: 048
     Dates: start: 20040504
  4. ZYPREXA [Suspect]
     Route: 065
  5. RISPERDAL [Suspect]
     Route: 065
  6. TRAZODONE [Concomitant]
     Indication: INSOMNIA
     Route: 048
     Dates: start: 20071102
  7. TRAZODONE [Concomitant]
     Indication: ANXIETY
     Route: 048
     Dates: start: 20071102
  8. TRAZODONE [Concomitant]
     Route: 048
     Dates: start: 20040504
  9. TRAZODONE [Concomitant]
     Route: 048
     Dates: start: 20040504
  10. ATORVASTATIN [Concomitant]
     Indication: HYPERCHOLESTEROLAEMIA
     Dates: start: 20040504
  11. LORAZEPAM [Concomitant]
     Dates: start: 20070709
  12. LORAZEPAM [Concomitant]
     Dates: start: 20060620
  13. LORAZEPAM [Concomitant]
     Dates: start: 20060203
  14. LOVASTATIN [Concomitant]
     Dates: start: 20050628
  15. HYDROCODONE BITARTRATE AND ACETAMINOPHEN [Concomitant]
     Dosage: 5/500 MG
     Dates: start: 20040326
  16. ESTRADIOL [Concomitant]
     Dates: start: 20060706
  17. MEPERIDINE HCL [Concomitant]
     Dates: start: 20050126
  18. MEPERIDINE HCL [Concomitant]
     Dosage: 25 MG/ML
     Dates: start: 20040723
  19. MEDROXYPROGESTERONE [Concomitant]
     Dates: start: 20060706
  20. CITALOPRAM HYDROBROMIDE [Concomitant]
     Dates: start: 20060913
  21. ALPRAZOLAM [Concomitant]
     Dates: start: 20061215
  22. CYCLOBENZAPRINE [Concomitant]
     Dates: start: 20051003
  23. OXYCODONE HCL AND ACETAMINOPHEN [Concomitant]
     Dosage: 7.5 - 500 MG
     Dates: start: 20051003
  24. OXYCODONE HCL AND ACETAMINOPHEN [Concomitant]
     Dosage: 5 - 325 MG
     Dates: start: 20050926
  25. PROMETHAZINE [Concomitant]
     Dosage: 25 MG/ML
     Dates: start: 20040723

REACTIONS (3)
  - CHEST PAIN [None]
  - DIABETES MELLITUS [None]
  - PANCREATITIS [None]
